FAERS Safety Report 13933104 (Version 4)
Quarter: 2018Q2

REPORT INFORMATION
  Report Type: Spontaneous
  Country: US (occurrence: US)
  Receive Date: 20170904
  Receipt Date: 20180607
  Transmission Date: 20180711
  Serious: Yes (Life-Threatening, Hospitalization, Other)
  Sender: FDA-Public Use
  Company Number: US-PFIZER INC-2017375450

PATIENT
  Age: 28 Year
  Sex: Male

DRUGS (10)
  1. SILDENAFIL. [Concomitant]
     Active Substance: SILDENAFIL
     Dosage: 100 MG, AS NEEDED
     Route: 048
  2. BUPROPION XL [Concomitant]
     Active Substance: BUPROPION
     Dosage: 100 MG, 2X/DAY
     Route: 048
  3. HYDROXYTRYPTOPHAN 5 HTP [Interacting]
     Active Substance: OXITRIPTAN
     Dosage: UNK
  4. DIVALPROEX ER [Concomitant]
     Active Substance: DIVALPROEX SODIUM
     Dosage: 1000 MG, 2X/DAY
     Route: 048
  5. PRAZOSIN. [Concomitant]
     Active Substance: PRAZOSIN
     Dosage: 6 MG (BEDTIME)
     Route: 048
  6. SERTRALINE HCL [Interacting]
     Active Substance: SERTRALINE HYDROCHLORIDE
     Dosage: 25 MG, 1X/DAY (EVERY MORNING)
     Route: 048
  7. SERTRALINE HCL [Suspect]
     Active Substance: SERTRALINE HYDROCHLORIDE
     Dosage: 200 MG, DAILY (EVERY MORNING)
     Route: 048
  8. HYDROXYZINE HCL [Concomitant]
     Active Substance: HYDROXYZINE HYDROCHLORIDE
     Dosage: 50 MG, DAILY (BEDTIME)
     Route: 048
  9. CYCLOBENZAPRINE. [Concomitant]
     Active Substance: CYCLOBENZAPRINE
     Dosage: UNK
     Route: 048
  10. BUPROPION XL [Concomitant]
     Active Substance: BUPROPION
     Dosage: 150 MG, DAILY
     Route: 048

REACTIONS (3)
  - Serotonin syndrome [Unknown]
  - Drug interaction [Unknown]
  - Rhabdomyolysis [Unknown]
